FAERS Safety Report 22614963 (Version 1)
Quarter: 2023Q2

REPORT INFORMATION
  Report Type: Spontaneous
  Country: US (occurrence: US)
  Receive Date: 20230619
  Receipt Date: 20230619
  Transmission Date: 20230722
  Serious: No
  Sender: FDA-Public Use
  Company Number: US-Accord-271347

PATIENT
  Sex: Female

DRUGS (1)
  1. OLMESARTAN MEDOXOMIL [Suspect]
     Active Substance: OLMESARTAN MEDOXOMIL
     Indication: Blood pressure measurement
     Route: 048
     Dates: start: 20220701

REACTIONS (10)
  - Fatigue [Not Recovered/Not Resolved]
  - Dizziness [Not Recovered/Not Resolved]
  - Dysstasia [Not Recovered/Not Resolved]
  - Gait inability [Not Recovered/Not Resolved]
  - Abdominal pain upper [Not Recovered/Not Resolved]
  - Loss of personal independence in daily activities [Not Recovered/Not Resolved]
  - Blood pressure increased [Recovering/Resolving]
  - Headache [Not Recovered/Not Resolved]
  - Dysphemia [Not Recovered/Not Resolved]
  - Fall [Unknown]
